FAERS Safety Report 18860574 (Version 3)
Quarter: 2021Q1

REPORT INFORMATION
  Report Type: Report from Study
  Country: BE (occurrence: BE)
  Receive Date: 20210208
  Receipt Date: 20210317
  Transmission Date: 20210420
  Serious: Yes (Hospitalization)
  Sender: FDA-Public Use
  Company Number: BE-BAYER-2021-055836

PATIENT
  Age: 55 Year
  Sex: Female
  Weight: 57 kg

DRUGS (6)
  1. DAROLUTAMIDE. [Suspect]
     Active Substance: DAROLUTAMIDE
     Indication: HER2 NEGATIVE BREAST CANCER
     Dosage: 1200 MG, QD
     Route: 048
     Dates: start: 20210112, end: 20210127
  2. DAROLUTAMIDE. [Suspect]
     Active Substance: DAROLUTAMIDE
     Indication: METASTASES TO LIVER
  3. XGEVA [Concomitant]
     Active Substance: DENOSUMAB
     Indication: METASTASES TO BONE
     Dosage: 120 MG, Q4WK
     Route: 058
  4. SIPRALEXA [Concomitant]
     Active Substance: ESCITALOPRAM OXALATE
     Indication: DEPRESSION
     Dosage: 10 MG, QD
     Route: 048
  5. DAROLUTAMIDE. [Suspect]
     Active Substance: DAROLUTAMIDE
     Indication: METASTASES TO BONE
     Dosage: 300 MG, BID
     Dates: start: 20210201
  6. XGEVA [Concomitant]
     Active Substance: DENOSUMAB
     Indication: METASTASES TO BONE
     Dosage: 120 MG, QD
     Route: 058

REACTIONS (1)
  - Headache [Recovered/Resolved]

NARRATIVE: CASE EVENT DATE: 20210125
